FAERS Safety Report 6608538-3 (Version None)
Quarter: 2010Q1

REPORT INFORMATION
  Report Type: 
  Country: None (occurrence: None)
  Receive Date: 20100212
  Receipt Date: 20091130
  Transmission Date: 20100710
  Serious: No
  Sender: FDA-Public Use
  Company Number: 1000010442

PATIENT
  Age: 44 Year
  Sex: Female

DRUGS (19)
  1. SAVELLA [Suspect]
     Indication: FIBROMYALGIA
     Dosage: 12.5 MG (12.5 MG, 1 IN 1 D), ORAL; SEE IMAGE
     Route: 048
     Dates: start: 20091024, end: 20091024
  2. SAVELLA [Suspect]
     Indication: FIBROMYALGIA
     Dosage: 12.5 MG (12.5 MG, 1 IN 1 D), ORAL; SEE IMAGE
     Route: 048
     Dates: start: 20091025, end: 20091026
  3. SAVELLA [Suspect]
     Indication: FIBROMYALGIA
     Dosage: 12.5 MG (12.5 MG, 1 IN 1 D), ORAL; SEE IMAGE
     Route: 048
     Dates: start: 20091027, end: 20091030
  4. SAVELLA [Suspect]
     Indication: FIBROMYALGIA
     Dosage: 12.5 MG (12.5 MG, 1 IN 1 D), ORAL; SEE IMAGE
     Route: 048
     Dates: start: 20091031
  5. CAMPRAL [Concomitant]
  6. ROBAXIN [Concomitant]
  7. MELOXICAM [Concomitant]
  8. OXYBUTYNIN [Concomitant]
  9. GABAPENTIN [Concomitant]
  10. VICODIN [Concomitant]
  11. LASIX [Concomitant]
  12. BUSPAR [Concomitant]
  13. HYDROXYZINE [Concomitant]
  14. GEODON [Concomitant]
  15. CARBAMAZEPINE [Concomitant]
  16. PRAVASTATIN [Concomitant]
  17. MULTI-VITAMIN [Concomitant]
  18. PROMETHAZINE [Concomitant]
  19. SINGULAIR [Concomitant]

REACTIONS (3)
  - HOT FLUSH [None]
  - NAUSEA [None]
  - VOMITING [None]
